FAERS Safety Report 18898885 (Version 1)
Quarter: 2021Q1

REPORT INFORMATION
  Report Type: Spontaneous
  Country: US (occurrence: US)
  Receive Date: 20210216
  Receipt Date: 20210216
  Transmission Date: 20210420
  Serious: No
  Sender: FDA-Public Use
  Company Number: US-ASTRAZENECA-2021A010994

PATIENT
  Age: 25663 Day
  Sex: Female
  Weight: 54.4 kg

DRUGS (4)
  1. AMLODIPINE DENAZETRIL [Concomitant]
     Dosage: 5/20 MG
  2. NOVOLOG [Concomitant]
     Active Substance: INSULIN ASPART
  3. BYDUREON BCISE [Suspect]
     Active Substance: EXENATIDE
     Indication: DIABETES MELLITUS
     Route: 065
     Dates: start: 20201215
  4. BYDUREON BCISE [Suspect]
     Active Substance: EXENATIDE
     Indication: DIABETES MELLITUS
     Dosage: SHE TOOK 3 DOSES OF BYDUREON BCISE
     Route: 065
     Dates: start: 20210112

REACTIONS (3)
  - Incorrect dose administered by device [Unknown]
  - Nausea [Recovered/Resolved]
  - Product use issue [Unknown]

NARRATIVE: CASE EVENT DATE: 20201215
